FAERS Safety Report 7413640-2 (Version None)
Quarter: 2011Q2

REPORT INFORMATION
  Report Type: 
  Country: None (occurrence: None)
  Receive Date: 20110413
  Receipt Date: 20110331
  Transmission Date: 20111010
  Serious: Yes (Hospitalization)
  Sender: FDA-Public Use
  Company Number: IT-BAYER-2010-003287

PATIENT
  Sex: Male

DRUGS (4)
  1. DIURESIX [Concomitant]
     Dosage: 0.5 DF, UNK
     Route: 048
  2. GARDENALE [Concomitant]
     Dosage: 0.5 DF, UNK
     Route: 048
  3. TALOFEN [Concomitant]
     Dosage: UNK
     Route: 048
     Dates: start: 20100906
  4. ASPIRIN [Suspect]
     Indication: PRODUCT USED FOR UNKNOWN INDICATION
     Dosage: 200 MG, QD
     Route: 048
     Dates: start: 19900101, end: 20101127

REACTIONS (3)
  - HAEMATOMA [None]
  - COGNITIVE DISORDER [None]
  - SUBDURAL HAEMATOMA [None]
